FAERS Safety Report 5413011-4 (Version None)
Quarter: 2007Q3

REPORT INFORMATION
  Report Type: 
  Country: None (occurrence: None)
  Receive Date: 20070809
  Receipt Date: 20070112
  Transmission Date: 20080115
  Serious: Yes (Hospitalization)
  Sender: FDA-Public Use
  Company Number: 2007P1000041

PATIENT
  Age: 82 Year
  Sex: Female

DRUGS (7)
  1. NICARDIPINE HYDROCHLORIDE [Suspect]
     Indication: HYPERTENSION
     Dosage: 20 MG;TID;PO
     Route: 048
     Dates: end: 20061019
  2. SPIRONOLACTONE [Suspect]
     Indication: DRUG USE FOR UNKNOWN INDICATION
     Dosage: 25 MG;QD;PO
     Route: 048
     Dates: start: 20061018
  3. HYDROCHLOROTHIAZIDE [Concomitant]
  4. HALOPERIDOL [Concomitant]
  5. PARACETAMOL [Concomitant]
  6. SERETIDE [Concomitant]
  7. ZOLPIDEM TARTRATE [Concomitant]

REACTIONS (7)
  - CREATININE RENAL CLEARANCE DECREASED [None]
  - DIZZINESS [None]
  - FALL [None]
  - HEADACHE [None]
  - HYPOTONIA [None]
  - MALAISE [None]
  - ORTHOSTATIC HYPOTENSION [None]
